FAERS Safety Report 6767146-4 (Version None)
Quarter: 2010Q2

REPORT INFORMATION
  Report Type: 
  Country: None (occurrence: None)
  Receive Date: 20100614
  Receipt Date: 20100604
  Transmission Date: 20101027
  Serious: Yes (Hospitalization, Other)
  Sender: FDA-Public Use
  Company Number: US-JNJFOC-20090200412

PATIENT
  Sex: Female
  Weight: 83.6 kg

DRUGS (61)
  1. CISAPRIDE [Suspect]
     Indication: IMPAIRED GASTRIC EMPTYING
     Route: 048
  2. CISAPRIDE [Suspect]
     Route: 048
  3. CISAPRIDE [Suspect]
     Indication: GASTROOESOPHAGEAL REFLUX DISEASE
     Route: 048
  4. CISAPRIDE [Suspect]
     Route: 048
  5. DEMEROL [Concomitant]
     Indication: ABDOMINAL PAIN
     Dosage: 2-4 HOURS AS NECESSARY
     Route: 042
  6. DEMEROL [Concomitant]
     Route: 042
  7. DEMEROL [Concomitant]
     Dosage: EVERY 3 HOURS
     Route: 042
  8. VYTORIN [Concomitant]
     Indication: HYPERCHOLESTEROLAEMIA
     Route: 048
  9. AMBIEN [Concomitant]
     Indication: INSOMNIA
     Route: 048
  10. AMBIEN [Concomitant]
     Dosage: AS NEEDED
     Route: 048
  11. AMBIEN [Concomitant]
     Indication: ANXIETY
     Dosage: AS NEEDED
     Route: 048
  12. AMBIEN [Concomitant]
     Route: 048
  13. K-DUR [Concomitant]
     Indication: ELECTROLYTE SUBSTITUTION THERAPY
     Route: 048
  14. AMITIZA [Concomitant]
     Indication: CONSTIPATION
     Route: 048
  15. NEXIUM [Concomitant]
     Indication: GASTROOESOPHAGEAL REFLUX DISEASE
     Route: 048
  16. SYNTHROID [Concomitant]
     Indication: HYPOTHYROIDISM
     Route: 048
  17. REGLAN [Concomitant]
     Indication: GASTROOESOPHAGEAL REFLUX DISEASE
     Route: 048
  18. VASOTEC [Concomitant]
     Indication: HYPERTENSION
     Route: 048
  19. KLONOPIN [Concomitant]
     Indication: TREMOR
     Route: 048
  20. KLONOPIN [Concomitant]
     Route: 048
  21. LAMICTAL [Concomitant]
     Indication: BIPOLAR DISORDER
     Route: 048
  22. ALLEGRA D 24 HOUR [Concomitant]
     Indication: MULTIPLE ALLERGIES
     Route: 048
  23. GRIFULVIN [Concomitant]
     Indication: FUNGAL INFECTION
     Route: 048
  24. DEMEROL [Concomitant]
     Route: 065
  25. DEMEROL [Concomitant]
     Route: 065
  26. DEMEROL [Concomitant]
     Route: 065
  27. DEMEROL [Concomitant]
     Indication: PAIN
     Route: 065
  28. DEMEROL [Concomitant]
     Route: 065
  29. DEMEROL [Concomitant]
     Route: 065
  30. PHENERGAN [Concomitant]
     Indication: ABDOMINAL PAIN
     Route: 065
  31. PHENERGAN [Concomitant]
     Route: 065
  32. PHENERGAN [Concomitant]
     Route: 065
  33. PHENERGAN [Concomitant]
     Indication: NAUSEA
     Route: 065
  34. PHENERGAN [Concomitant]
     Route: 065
  35. PHENERGAN [Concomitant]
     Route: 065
  36. STADOL [Concomitant]
     Indication: ABDOMINAL PAIN
     Route: 065
  37. STADOL [Concomitant]
     Route: 065
  38. STADOL [Concomitant]
     Route: 065
  39. STADOL [Concomitant]
     Route: 065
  40. STADOL [Concomitant]
     Route: 065
  41. STADOL [Concomitant]
     Indication: PAIN
     Route: 065
  42. STADOL [Concomitant]
     Route: 065
  43. STADOL [Concomitant]
     Route: 065
  44. STADOL [Concomitant]
     Route: 065
  45. STADOL [Concomitant]
     Route: 065
  46. ZOFRAN [Concomitant]
     Indication: NAUSEA
     Route: 042
  47. ZOFRAN [Concomitant]
     Dosage: EVERY 6 HRS
     Route: 042
  48. ZOFRAN [Concomitant]
     Route: 042
  49. ZOFRAN [Concomitant]
     Route: 042
  50. ZOFRAN [Concomitant]
     Route: 042
  51. ZOFRAN [Concomitant]
     Route: 042
  52. ZOFRAN [Concomitant]
     Dosage: EVERY 4-6 HOURS
     Route: 042
  53. ZOFRAN [Concomitant]
     Route: 048
  54. ZOFRAN [Concomitant]
     Route: 048
  55. ZOFRAN [Concomitant]
     Route: 048
  56. ROCEPHIN [Concomitant]
     Indication: OROPHARYNGEAL PAIN
     Route: 065
  57. ROCEPHIN [Concomitant]
     Indication: PYREXIA
     Route: 065
  58. TALWIN [Concomitant]
     Indication: ABDOMINAL PAIN
     Route: 065
  59. TALWIN [Concomitant]
     Route: 065
  60. CYMBALTA [Concomitant]
     Route: 048
  61. NORVASC [Concomitant]
     Route: 065

REACTIONS (11)
  - ABDOMINAL PAIN [None]
  - ABDOMINAL PAIN UPPER [None]
  - ANXIETY [None]
  - BACK PAIN [None]
  - CHEST PAIN [None]
  - GASTRIC DILATATION [None]
  - HYPOTENSION [None]
  - IMPAIRED GASTRIC EMPTYING [None]
  - OVERDOSE [None]
  - RESPIRATORY FAILURE [None]
  - SUICIDE ATTEMPT [None]
